FAERS Safety Report 7270153-9 (Version None)
Quarter: 2010Q4

REPORT INFORMATION
  Report Type: 
  Country: None (occurrence: None)
  Receive Date: 20101130
  Receipt Date: 20090831
  Transmission Date: 20110411
  Serious: Yes (Hospitalization)
  Sender: FDA-Public Use
  Company Number: 2009SP023462

PATIENT
  Age: 36 Year
  Sex: Female
  Weight: 58.9676 kg

DRUGS (4)
  1. NUVARING [Suspect]
     Indication: PRODUCT USED FOR UNKNOWN INDICATION
     Dosage: 1 DF
     Dates: start: 20060901, end: 20070901
  2. MULTI-VITAMIN [Concomitant]
  3. BEE POLLEN [Concomitant]
  4. CONJUGATED LIINOLEIC ACID [Concomitant]

REACTIONS (3)
  - DYSURIA [None]
  - MICTURITION URGENCY [None]
  - PULMONARY EMBOLISM [None]
